FAERS Safety Report 8531607-8 (Version None)
Quarter: 2012Q3

REPORT INFORMATION
  Report Type: 
  Country: None (occurrence: None)
  Receive Date: 20120723
  Receipt Date: 20120719
  Transmission Date: 20120928
  Serious: Yes (Other)
  Sender: FDA-Public Use
  Company Number: PHEH2012US012742

PATIENT
  Sex: Male

DRUGS (1)
  1. VALTURNA [Suspect]

REACTIONS (1)
  - DIABETES MELLITUS [None]
